FAERS Safety Report 22745109 (Version 2)
Quarter: 2024Q1

REPORT INFORMATION
  Report Type: Report from Study
  Country: BR (occurrence: BR)
  Receive Date: 20230725
  Receipt Date: 20240318
  Transmission Date: 20240409
  Serious: Yes (Other)
  Sender: FDA-Public Use
  Company Number: BR-CELLTRION INC.-2023BR014659

PATIENT

DRUGS (6)
  1. INFLIXIMAB [Suspect]
     Active Substance: INFLIXIMAB
     Indication: Ankylosing spondylitis
     Dosage: 4 AMPOULES EVERY 8 WEEKS
     Route: 042
     Dates: start: 20221014
  2. INFLIXIMAB [Suspect]
     Active Substance: INFLIXIMAB
     Dosage: UNK
     Route: 042
     Dates: start: 20230202
  3. INFLIXIMAB [Suspect]
     Active Substance: INFLIXIMAB
     Dosage: UNK
     Route: 042
     Dates: start: 20230714
  4. INFLIXIMAB [Suspect]
     Active Substance: INFLIXIMAB
     Dosage: 4 AMPOULES EVERY 8 WEEKS, HOWEVER THE INTERVAL WILL CHANGE TO EVERY 6 WEEKS
     Route: 042
  5. CANDESARTAN CILEXETIL\FELODIPINE [Concomitant]
     Active Substance: CANDESARTAN CILEXETIL\FELODIPINE
     Indication: Blood pressure management
     Dosage: (16 MG + 2.5 MG) 1 PILL A DAY
     Route: 048
     Dates: start: 2015
  6. DUTASTERIDE\TAMSULOSIN [Concomitant]
     Active Substance: DUTASTERIDE\TAMSULOSIN
     Indication: Benign prostatic hyperplasia
     Dosage: (0.5 MG + 0.4 MG) 1 PILL A DAY (START: 2 YEARS AGO)
     Route: 048

REACTIONS (9)
  - Surgery [Recovered/Resolved]
  - Fear [Recovered/Resolved]
  - Tinnitus [Recovered/Resolved]
  - Musculoskeletal stiffness [Unknown]
  - Arthralgia [Unknown]
  - Malaise [Recovered/Resolved]
  - Intentional dose omission [Unknown]
  - Intentional product use issue [Unknown]
  - Intentional dose omission [Recovered/Resolved]

NARRATIVE: CASE EVENT DATE: 20230615
